FAERS Safety Report 5132344-2 (Version None)
Quarter: 2006Q4

REPORT INFORMATION
  Report Type: 
  Country: None (occurrence: None)
  Receive Date: 20061023
  Receipt Date: 20060928
  Transmission Date: 20070319
  Serious: Yes (Hospitalization)
  Sender: FDA-Public Use
  Company Number: US-AMGEN-US195190

PATIENT
  Sex: Female

DRUGS (2)
  1. ENBREL [Suspect]
     Indication: PSORIATIC ARTHROPATHY
     Route: 058
     Dates: start: 20040912
  2. ENBREL [Suspect]
     Indication: PSORIASIS

REACTIONS (5)
  - ANORECTAL DISORDER [None]
  - CONDITION AGGRAVATED [None]
  - OSTEOARTHRITIS [None]
  - PSORIASIS [None]
  - RECTAL HAEMORRHAGE [None]
